FAERS Safety Report 23554496 (Version 2)
Quarter: 2024Q1

REPORT INFORMATION
  Report Type: Spontaneous
  Country: US (occurrence: US)
  Receive Date: 20240222
  Receipt Date: 20240328
  Transmission Date: 20240410
  Serious: No
  Sender: FDA-Public Use
  Company Number: US-KARYOPHARM-2024KPT000441

PATIENT

DRUGS (8)
  1. XPOVIO [Suspect]
     Active Substance: SELINEXOR
     Indication: Plasma cell myeloma
     Dosage: 100 MG, WEEKLY
     Route: 048
     Dates: start: 20240130
  2. XPOVIO [Suspect]
     Active Substance: SELINEXOR
     Dosage: 200 MG, WEEKLY
     Route: 048
  3. DEXAMETHASONE [Concomitant]
     Active Substance: DEXAMETHASONE
  4. VELCADE [Concomitant]
     Active Substance: BORTEZOMIB
  5. OLANZAPINE [Concomitant]
     Active Substance: OLANZAPINE
  6. ONDANSETRON [Concomitant]
     Active Substance: ONDANSETRON
  7. ACYCLOVIR [Concomitant]
     Active Substance: ACYCLOVIR
  8. ASPIRIN [Concomitant]
     Active Substance: ASPIRIN

REACTIONS (2)
  - Nausea [Not Recovered/Not Resolved]
  - Fatigue [Unknown]

NARRATIVE: CASE EVENT DATE: 20240101
